FAERS Safety Report 12958034 (Version 2)
Quarter: 2016Q4

REPORT INFORMATION
  Report Type: Spontaneous
  Country: US (occurrence: US)
  Receive Date: 20161120
  Receipt Date: 20161225
  Transmission Date: 20170207
  Serious: No
  Sender: FDA-Public Use
  Company Number: US-ASTRAZENECA-2012SE36937

PATIENT
  Age: 29068 Day
  Sex: Female
  Weight: 88.5 kg

DRUGS (15)
  1. CALCIUM [Concomitant]
     Active Substance: CALCIUM
  2. LITHIUM. [Concomitant]
     Active Substance: LITHIUM
  3. SYMBICORT [Suspect]
     Active Substance: BUDESONIDE\FORMOTEROL FUMARATE DIHYDRATE
     Indication: CHRONIC OBSTRUCTIVE PULMONARY DISEASE
     Dosage: 160/4.5 MCG TWICE DAILY
     Route: 055
     Dates: start: 20160107
  4. MULTIVITAMIN [Concomitant]
     Active Substance: VITAMINS
  5. SYMBICORT [Suspect]
     Active Substance: BUDESONIDE\FORMOTEROL FUMARATE DIHYDRATE
     Indication: CHRONIC OBSTRUCTIVE PULMONARY DISEASE
     Dosage: 160/4.5 MCG TWICE DAILY
     Route: 055
     Dates: start: 201602, end: 201611
  6. EFFEXOR [Concomitant]
     Active Substance: VENLAFAXINE HYDROCHLORIDE
  7. CETRIZINE HYDROCHOLIRIDE [Concomitant]
  8. METRONIDAZOLE. [Concomitant]
     Active Substance: METRONIDAZOLE
  9. SYNTHROID [Concomitant]
     Active Substance: LEVOTHYROXINE SODIUM
  10. LITHIUM. [Concomitant]
     Active Substance: LITHIUM
  11. SYMBICORT [Suspect]
     Active Substance: BUDESONIDE\FORMOTEROL FUMARATE DIHYDRATE
     Indication: CHRONIC OBSTRUCTIVE PULMONARY DISEASE
     Dosage: 160/4.5 MCG TWICE DAILY
     Route: 055
     Dates: start: 20161107
  12. FISH OIL [Concomitant]
     Active Substance: FISH OIL
  13. SEROQUEL XR [Suspect]
     Active Substance: QUETIAPINE FUMARATE
     Dosage: BID
     Route: 048
     Dates: start: 20160107, end: 20160606
  14. ALLERGY RELIEF [Concomitant]
  15. LOSARTAN. [Concomitant]
     Active Substance: LOSARTAN

REACTIONS (11)
  - Chronic obstructive pulmonary disease [Unknown]
  - Off label use [Unknown]
  - Aphonia [Unknown]
  - Product use issue [Unknown]
  - Sinusitis [Unknown]
  - Pulmonary mass [Unknown]
  - Bronchiectasis [Unknown]
  - Product quality issue [Unknown]
  - Dizziness [Unknown]
  - Dysphonia [Recovered/Resolved]
  - Rhinitis allergic [Unknown]

NARRATIVE: CASE EVENT DATE: 20160107
